FAERS Safety Report 16103379 (Version 3)
Quarter: 2020Q1

REPORT INFORMATION
  Report Type: Report from Study
  Country: ES (occurrence: ES)
  Receive Date: 20190322
  Receipt Date: 20200317
  Transmission Date: 20200409
  Serious: Yes (Hospitalization, Other)
  Sender: FDA-Public Use
  Company Number: ES-AUROBINDO-AUR-APL-2019-014431

PATIENT
  Age: 45 Year
  Sex: Male

DRUGS (2)
  1. TOPIRAMATE. [Suspect]
     Active Substance: TOPIRAMATE
     Dosage: 50 MILLIGRAM, ONCE A DAY (MAINTAINED FOR ANOTHER WEEK)
     Route: 065
  2. TOPIRAMATE. [Suspect]
     Active Substance: TOPIRAMATE
     Indication: PRODUCT USED FOR UNKNOWN INDICATION
     Dosage: 25 MILLIGRAM, ONCE A DAY (FOR 1 WEEK)
     Route: 065

REACTIONS (3)
  - Choroidal effusion [Recovered/Resolved]
  - Myopia [Recovered/Resolved]
  - Angle closure glaucoma [Recovered/Resolved]
